APPROVED DRUG PRODUCT: MEROPENEM
Active Ingredient: MEROPENEM
Strength: 500MG/VIAL
Dosage Form/Route: INJECTABLE;INJECTION
Application: A216154 | Product #001 | TE Code: AP
Applicant: BROOKS STERISCIENCE LTD
Approved: Aug 18, 2022 | RLD: No | RS: No | Type: RX